FAERS Safety Report 13053431 (Version 3)
Quarter: 2017Q1

REPORT INFORMATION
  Report Type: Spontaneous
  Country: JP (occurrence: JP)
  Receive Date: 20161222
  Receipt Date: 20170208
  Transmission Date: 20170428
  Serious: Yes (Death, Life-Threatening, Other)
  Sender: FDA-Public Use
  Company Number: JP-ROCHE-1870551

PATIENT
  Age: 71 Year
  Sex: Male
  Weight: 44 kg

DRUGS (10)
  1. FLUOROURACIL. [Concomitant]
     Active Substance: FLUOROURACIL
     Indication: RECTAL CANCER
     Route: 040
     Dates: start: 201206
  2. CALCIUM LEVOFOLINATE [Concomitant]
     Active Substance: LEVOLEUCOVORIN CALCIUM
     Indication: RECTAL CANCER
     Route: 041
     Dates: start: 200805
  3. FLUOROURACIL. [Concomitant]
     Active Substance: FLUOROURACIL
     Indication: RECTAL CANCER
     Route: 040
     Dates: start: 200805, end: 201205
  4. FLUOROURACIL. [Concomitant]
     Active Substance: FLUOROURACIL
     Indication: RECTAL CANCER
     Route: 041
     Dates: start: 201206
  5. OXALIPLATIN. [Concomitant]
     Active Substance: OXALIPLATIN
     Indication: RECTAL CANCER
     Route: 041
     Dates: start: 201206, end: 201210
  6. CALCIUM LEVOFOLINATE [Concomitant]
     Active Substance: LEVOLEUCOVORIN CALCIUM
     Indication: RECTAL CANCER
     Route: 041
     Dates: start: 201206
  7. AVASTIN [Suspect]
     Active Substance: BEVACIZUMAB
     Indication: RECTAL CANCER
     Dosage: TREATMENT LINE: 1ST
     Route: 041
     Dates: start: 200805, end: 201205
  8. FLUOROURACIL. [Concomitant]
     Active Substance: FLUOROURACIL
     Indication: RECTAL CANCER
     Route: 041
     Dates: start: 200805, end: 201205
  9. IRINOTECAN HYDROCHLORIDE. [Concomitant]
     Active Substance: IRINOTECAN HYDROCHLORIDE
     Indication: RECTAL CANCER
     Dosage: COMPLETED TREATMENT CYCLE NUMBER: 31
     Route: 041
     Dates: start: 200805
  10. AVASTIN [Suspect]
     Active Substance: BEVACIZUMAB
     Dosage: TREATMENT LINE: 1ST COMPLETED TREATMENT CYCLE NUMBER: (1ST) PLUS 31 TIMES FOUR TIMES (2ND)
     Route: 041
     Dates: start: 201206, end: 201210

REACTIONS (4)
  - Rectal cancer [Fatal]
  - Febrile neutropenia [Recovering/Resolving]
  - Gastrointestinal perforation [Recovered/Resolved]
  - Necrotising fasciitis [Recovered/Resolved]

NARRATIVE: CASE EVENT DATE: 20121104
